FAERS Safety Report 5166660-5 (Version None)
Quarter: 2006Q4

REPORT INFORMATION
  Report Type: 
  Country: None (occurrence: None)
  Receive Date: 20061130
  Receipt Date: 20061130
  Transmission Date: 20070319
  Serious: Yes (Other)
  Sender: FDA-Public Use
  Company Number: None

PATIENT
  Age: 56 Year
  Sex: Female

DRUGS (7)
  1. AIRBORNE EFFERVESCENT [Suspect]
     Dates: start: 20051218, end: 20051219
  2. ATENOLOL [Concomitant]
  3. ELAVIL [Concomitant]
  4. ETODOLAC [Concomitant]
  5. FLEXERIL [Concomitant]
  6. ESTRADIOL INJ [Concomitant]
  7. PREVACID [Concomitant]

REACTIONS (12)
  - ANTINUCLEAR ANTIBODY POSITIVE [None]
  - ASTHENIA [None]
  - CHROMATURIA [None]
  - DIABETES MELLITUS [None]
  - FAECES PALE [None]
  - FATIGUE [None]
  - HEPATIC NECROSIS [None]
  - HEPATIC STEATOSIS [None]
  - HEPATIC TRAUMA [None]
  - PRURITUS [None]
  - RASH [None]
  - SMOOTH MUSCLE ANTIBODY POSITIVE [None]
